FAERS Safety Report 9190741 (Version 1)
Quarter: 2013Q1

REPORT INFORMATION
  Report Type: Spontaneous
  Country: GB (occurrence: None)
  Receive Date: 20130322
  Receipt Date: 20130322
  Transmission Date: 20140127
  Serious: Yes (Other)
  Sender: FDA-Public Use
  Company Number: GB-DEXPHARM-20130098

PATIENT
  Age: 51 Year
  Sex: Male

DRUGS (6)
  1. OMEPRAZOLE [Suspect]
     Dates: start: 20130118
  2. AMIAS [Concomitant]
  3. AMOXICILLIN [Concomitant]
  4. ASPIRIN [Concomitant]
  5. CANDESATAN [Concomitant]
  6. FELODIPINE [Concomitant]

REACTIONS (1)
  - Gastrointestinal disorder [None]
